FAERS Safety Report 13203796 (Version 1)
Quarter: 2017Q1

REPORT INFORMATION
  Report Type: Spontaneous
  Country: TR (occurrence: TR)
  Receive Date: 20170209
  Receipt Date: 20170209
  Transmission Date: 20170428
  Serious: Yes (Other)
  Sender: FDA-Public Use
  Company Number: TR-PFIZER INC-2017052925

PATIENT
  Age: 14 Year
  Sex: Female

DRUGS (1)
  1. GENOTROPIN GOQUICK [Suspect]
     Active Substance: SOMATROPIN
     Dosage: 0.30 MG, 6 TIMES A WEEK
     Dates: end: 20140624

REACTIONS (3)
  - Pituitary tumour [Recovering/Resolving]
  - Vomiting [Recovered/Resolved]
  - Oedema [Recovered/Resolved]
